FAERS Safety Report 23775451 (Version 1)
Quarter: 2024Q2

REPORT INFORMATION
  Report Type: Spontaneous
  Country: US (occurrence: US)
  Receive Date: 20240423
  Receipt Date: 20240423
  Transmission Date: 20240716
  Serious: No
  Sender: FDA-Public Use
  Company Number: US-Covis Pharma GmbH-2024COV00490

PATIENT
  Sex: Female

DRUGS (5)
  1. ALTOPREV [Suspect]
     Active Substance: LOVASTATIN
  2. JAKAFI [Suspect]
     Active Substance: RUXOLITINIB
     Indication: Myelofibrosis
     Dosage: 2 TABLETS AS 10 MILLIGRAM EVERY MORNING
     Route: 048
     Dates: start: 202211
  3. JAKAFI [Suspect]
     Active Substance: RUXOLITINIB
     Dosage: 1 TABLET AS 5 MILLIGRAM, QD EVERY EVENING
     Route: 048
     Dates: start: 202211
  4. JAKAFI [Suspect]
     Active Substance: RUXOLITINIB
     Dosage: 5 MILLIGRAM (2 TABLETS QAM AND 1 TABLET QPM)
     Route: 048
     Dates: start: 202201
  5. MAGNESIUM [Suspect]
     Active Substance: MAGNESIUM

REACTIONS (3)
  - Muscle spasms [Recovered/Resolved]
  - Alopecia [Unknown]
  - Amnesia [Unknown]
